FAERS Safety Report 8542727-6 (Version None)
Quarter: 2012Q3

REPORT INFORMATION
  Report Type: 
  Country: None (occurrence: None)
  Receive Date: 20120727
  Receipt Date: 20120716
  Transmission Date: 20120928
  Serious: Yes (Hospitalization)
  Sender: FDA-Public Use
  Company Number: US-BIOGENIDEC-2010BI002974

PATIENT
  Age: 52 Year
  Sex: Female

DRUGS (4)
  1. AVONEX [Suspect]
     Route: 030
     Dates: start: 20071020
  2. AVONEX [Suspect]
     Indication: MULTIPLE SCLEROSIS
     Route: 030
     Dates: start: 19961001, end: 20030101
  3. AVONEX [Suspect]
     Route: 030
     Dates: start: 20071020
  4. AVONEX [Suspect]
     Route: 030
     Dates: start: 20030101, end: 20060531

REACTIONS (22)
  - HEART RATE INCREASED [None]
  - MUSCULOSKELETAL STIFFNESS [None]
  - RESPIRATORY FAILURE [None]
  - FEELING COLD [None]
  - MIDDLE INSOMNIA [None]
  - ROAD TRAFFIC ACCIDENT [None]
  - BACK PAIN [None]
  - COMA [None]
  - CONCUSSION [None]
  - LOWER LIMB FRACTURE [None]
  - VISUAL IMPAIRMENT [None]
  - PAIN [None]
  - RIB FRACTURE [None]
  - INFLUENZA LIKE ILLNESS [None]
  - PNEUMOTHORAX [None]
  - AMNESIA [None]
  - SUBARACHNOID HAEMORRHAGE [None]
  - SPLENIC RUPTURE [None]
  - AORTIC ANEURYSM [None]
  - MOBILITY DECREASED [None]
  - IRRITABILITY [None]
  - ARTHRALGIA [None]
